FAERS Safety Report 12131467 (Version 1)
Quarter: 2016Q1

REPORT INFORMATION
  Report Type: Spontaneous
  Country: US (occurrence: US)
  Receive Date: 20160301
  Receipt Date: 20160301
  Transmission Date: 20160526
  Serious: No
  Sender: FDA-Public Use
  Company Number: US-APOTEX-2015AP014555

PATIENT
  Age: 36 Year
  Sex: Female

DRUGS (2)
  1. GEMCITABINE [Suspect]
     Active Substance: GEMCITABINE\GEMCITABINE HYDROCHLORIDE
     Indication: FOLLICULAR DENDRITIC CELL SARCOMA
     Dosage: FIXED DOSE RATE INFUSION
     Route: 065
  2. DOCETAXEL INJECTION [Suspect]
     Active Substance: DOCETAXEL
     Indication: FOLLICULAR DENDRITIC CELL SARCOMA
     Dosage: UNK
     Route: 065

REACTIONS (2)
  - Off label use [Recovered/Resolved]
  - Fatigue [Unknown]
